FAERS Safety Report 5332344-3 (Version None)
Quarter: 2007Q2

REPORT INFORMATION
  Report Type: 
  Country: None (occurrence: None)
  Receive Date: 20070523
  Receipt Date: 20070518
  Transmission Date: 20071010
  Serious: Yes (Other)
  Sender: FDA-Public Use
  Company Number: A0651965A

PATIENT
  Age: 56 Year
  Sex: Female

DRUGS (6)
  1. LAMICTAL [Suspect]
     Indication: BIPOLAR DISORDER
     Dosage: 200MG PER DAY
     Route: 048
     Dates: start: 20060801
  2. KLONOPIN [Concomitant]
  3. NEURONTIN [Concomitant]
  4. INDERAL [Concomitant]
  5. SYNTHROID [Concomitant]
  6. LITHIUM CARBONATE [Concomitant]

REACTIONS (1)
  - APHASIA [None]
